FAERS Safety Report 18685899 (Version 9)
Quarter: 2023Q1

REPORT INFORMATION
  Report Type: Spontaneous
  Country: CA (occurrence: CA)
  Receive Date: 20201231
  Receipt Date: 20230204
  Transmission Date: 20230417
  Serious: Yes (Other)
  Sender: FDA-Public Use
  Company Number: CA-CELLTRION INC.-2020CA025431

PATIENT

DRUGS (19)
  1. INFLECTRA [Suspect]
     Active Substance: INFLIXIMAB-DYYB
     Indication: Crohn^s disease
     Dosage: 400 MG (5.7MG/KG) EVERY 6 WEEKS
     Route: 042
     Dates: start: 20200818, end: 20220428
  2. INFLECTRA [Suspect]
     Active Substance: INFLIXIMAB-DYYB
     Dosage: 400 MG (5.7MG/KG) EVERY 6 WEEKS
     Route: 042
     Dates: start: 20200928
  3. INFLECTRA [Suspect]
     Active Substance: INFLIXIMAB-DYYB
     Dosage: 400 MG EVERY 6 WEEKS
     Route: 042
  4. INFLECTRA [Suspect]
     Active Substance: INFLIXIMAB-DYYB
     Dosage: 400 MG EVERY 6 WEEKS
     Route: 042
     Dates: start: 20201109
  5. INFLECTRA [Suspect]
     Active Substance: INFLIXIMAB-DYYB
     Dosage: 400 MG EVERY 6 WEEKS
     Route: 042
     Dates: start: 20210427
  6. INFLECTRA [Suspect]
     Active Substance: INFLIXIMAB-DYYB
     Dosage: 400 MG EVERY 6 WEEKS
     Route: 042
     Dates: start: 20210608
  7. INFLECTRA [Suspect]
     Active Substance: INFLIXIMAB-DYYB
     Dosage: 400 MG EVERY 6 WEEKS
     Route: 042
     Dates: start: 20210720
  8. INFLECTRA [Suspect]
     Active Substance: INFLIXIMAB-DYYB
     Dosage: 400 MG EVERY 6 WEEKS
     Route: 042
     Dates: start: 20220210
  9. INFLECTRA [Suspect]
     Active Substance: INFLIXIMAB-DYYB
     Dosage: 400 MG EVERY 6 WEEKS
     Route: 042
     Dates: start: 20220210
  10. INFLECTRA [Suspect]
     Active Substance: INFLIXIMAB-DYYB
     Dosage: 400 MG EVERY 6 WEEKS
     Route: 042
     Dates: start: 20220324
  11. INFLECTRA [Suspect]
     Active Substance: INFLIXIMAB-DYYB
     Dosage: 400 MG EVERY 6 WEEKS
     Route: 042
     Dates: end: 20220428
  12. INFLECTRA [Suspect]
     Active Substance: INFLIXIMAB-DYYB
     Dosage: 1 DF WEEK 0  AND 1 GIVEN IN HOSPITAL; WEEK 4 TO BE GIVEN
     Route: 042
     Dates: start: 20220706, end: 20220811
  13. INFLECTRA [Suspect]
     Active Substance: INFLIXIMAB-DYYB
     Dosage: 1 DF WEEK 0 AND 1 GIVEN IN HOSPITAL; WEEK 4 TO BE GIVEN
     Route: 042
     Dates: start: 20220711
  14. INFLECTRA [Suspect]
     Active Substance: INFLIXIMAB-DYYB
     Dosage: 700 MG EVERY 8 WEEKS
     Route: 042
     Dates: start: 20221008
  15. INFLECTRA [Suspect]
     Active Substance: INFLIXIMAB-DYYB
     Dosage: 700 MG EVERY 8 WEEKS
     Route: 042
     Dates: start: 20221130
  16. INFLECTRA [Suspect]
     Active Substance: INFLIXIMAB-DYYB
     Dosage: 700 MG EVERY 8 WEEKS
     Route: 042
     Dates: start: 20230125
  17. ENTYVIO [Concomitant]
     Active Substance: VEDOLIZUMAB
     Dosage: UNK
     Route: 065
     Dates: start: 202203
  18. METHOTREXATE [Concomitant]
     Active Substance: METHOTREXATE
     Dosage: UNK
     Route: 058
  19. METHOTREXATE [Concomitant]
     Active Substance: METHOTREXATE
     Dosage: UNK
     Route: 058

REACTIONS (7)
  - Ankle fracture [Unknown]
  - Off label use [Unknown]
  - Intentional product use issue [Unknown]
  - Off label use [Unknown]
  - Product dose omission issue [Unknown]
  - Weight increased [Not Recovered/Not Resolved]
  - Condition aggravated [Not Recovered/Not Resolved]

NARRATIVE: CASE EVENT DATE: 20200818
